FAERS Safety Report 4630298-6 (Version None)
Quarter: 2005Q2

REPORT INFORMATION
  Report Type: 
  Country: None (occurrence: None)
  Receive Date: 20050408
  Receipt Date: 20050401
  Transmission Date: 20051028
  Serious: Yes (Hospitalization)
  Sender: FDA-Public Use
  Company Number: 200512912GDDC

PATIENT
  Age: 55 Year
  Sex: Male
  Weight: 120 kg

DRUGS (9)
  1. FLUDEX [Suspect]
     Indication: ESSENTIAL HYPERTENSION
     Route: 048
     Dates: start: 19960624, end: 20020318
  2. MEDIATOR [Suspect]
     Indication: DIABETES MELLITUS NON-INSULIN-DEPENDENT
     Route: 048
     Dates: start: 20020301
  3. SOPROL [Suspect]
     Indication: HYPERTENSION
     Route: 048
     Dates: start: 19960624
  4. ATACAND [Suspect]
     Indication: HYPERTENSION
     Route: 048
     Dates: start: 19990402
  5. GLUCOPHAGE [Suspect]
     Indication: DIABETES MELLITUS
     Dates: end: 20020201
  6. ZECLAR [Concomitant]
     Dates: start: 20010324
  7. DIMETANE [Concomitant]
     Dates: start: 20010324
  8. METFORMIN HCL [Concomitant]
     Dates: start: 20010824
  9. TAKETIAM [Concomitant]

REACTIONS (2)
  - MOUTH ULCERATION [None]
  - PEMPHIGOID [None]
